FAERS Safety Report 26180128 (Version 1)
Quarter: 2025Q4

REPORT INFORMATION
  Report Type: Spontaneous
  Country: EU (occurrence: EU)
  Receive Date: 20251219
  Receipt Date: 20251219
  Transmission Date: 20260117
  Serious: Yes (Hospitalization)
  Sender: JOHNSON AND JOHNSON
  Company Number: EU-JNJFOC-JAFRA9494

PATIENT
  Age: 76 Year
  Sex: Female
  Weight: 83 kg

DRUGS (3)
  1. MEBENDAZOLE [Suspect]
     Active Substance: MEBENDAZOLE
     Indication: Echinococciasis
     Route: 048
     Dates: start: 19900723, end: 19901219
  2. NICARDIPINE [Concomitant]
     Active Substance: NICARDIPINE
     Indication: Product used for unknown indication
  3. SPIRONOLACTONE [Concomitant]
     Active Substance: SPIRONOLACTONE
     Indication: Product used for unknown indication

REACTIONS (8)
  - Panic reaction [Recovered/Resolved]
  - Anxiety [Recovered/Resolved]
  - Chest pain [Recovered/Resolved]
  - Hallucination, auditory [Recovered/Resolved]
  - Hypotonia [Recovered/Resolved]
  - Nightmare [Recovered/Resolved]
  - Tremor [Recovered/Resolved]
  - Vertigo [Recovered/Resolved]

NARRATIVE: CASE EVENT DATE: 19901019
